FAERS Safety Report 23520996 (Version 1)
Quarter: 2024Q1

REPORT INFORMATION
  Report Type: 
  Country: None (occurrence: None)
  Receive Date: 20240214
  Receipt Date: 20240214
  Transmission Date: 20240410
  Serious: No
  Sender: FDA-Public Use
  Company Number: US-ROCHE-3474385

PATIENT
  Weight: 118.7 kg

DRUGS (3)
  1. BEVACIZUMAB [Suspect]
     Active Substance: BEVACIZUMAB
     Dosage: LAST ADMINISTERED DATE- 01/NOV/2023
     Dates: start: 20231011
  2. ATEZOLIZUMAB [Suspect]
     Active Substance: ATEZOLIZUMAB
     Dosage: LAST ADMINISTERED DATE- 01/NOV/2023
     Dates: start: 20231011
  3. ERLOTINIB [Suspect]
     Active Substance: ERLOTINIB
     Dosage: LAST ADMINISTERED DATE- 11/NOV/2023
     Dates: start: 20231011

REACTIONS (1)
  - Pyrexia [None]

NARRATIVE: CASE EVENT DATE: 20231112
